FAERS Safety Report 11582984 (Version 1)
Quarter: 2015Q4

REPORT INFORMATION
  Report Type: Spontaneous
  Country: US (occurrence: US)
  Receive Date: 20151001
  Receipt Date: 20151001
  Transmission Date: 20160304
  Serious: No
  Sender: FDA-Public Use
  Company Number: US-ROCHE-654036

PATIENT
  Age: 56 Year
  Sex: Male
  Weight: 90.7 kg

DRUGS (3)
  1. PEGASYS [Suspect]
     Active Substance: PEGINTERFERON ALFA-2A
     Indication: HEPATITIS C
     Dosage: FORM: PRE-FILLED SYRINGE.
     Route: 030
     Dates: start: 20090828, end: 200911
  2. RIBAVIRIN. [Suspect]
     Active Substance: RIBAVIRIN
     Indication: HEPATITIS C
     Dosage: DIVIDED DOSES, PILL
     Route: 065
     Dates: start: 20090828, end: 200911
  3. XANAX [Concomitant]
     Active Substance: ALPRAZOLAM
     Indication: DEPRESSION
     Dosage: OTHER INIDCATION: ANXIETY.
     Route: 065

REACTIONS (9)
  - Influenza like illness [Recovered/Resolved]
  - Incorrect dose administered [Unknown]
  - Rash [Not Recovered/Not Resolved]
  - Influenza [Recovering/Resolving]
  - Disturbance in attention [Not Recovered/Not Resolved]
  - Nightmare [Not Recovered/Not Resolved]
  - Injection site bruising [Not Recovered/Not Resolved]
  - Insomnia [Not Recovered/Not Resolved]
  - Hypertension [Unknown]

NARRATIVE: CASE EVENT DATE: 20090805
